FAERS Safety Report 25498738 (Version 1)
Quarter: 2025Q3

REPORT INFORMATION
  Report Type: Spontaneous
  Country: EU (occurrence: None)
  Receive Date: 20250701
  Receipt Date: 20250701
  Transmission Date: 20251021
  Serious: Yes (Life-Threatening, Other)
  Sender: ACS DOBFAR
  Company Number: EU-ACS-20250350

PATIENT
  Age: 70 Year
  Sex: Female

DRUGS (2)
  1. CEFTAZIDIME [Suspect]
     Active Substance: CEFTAZIDIME
     Indication: Postoperative wound infection
     Dates: start: 202302, end: 20230223
  2. MEROPENEM [Suspect]
     Active Substance: MEROPENEM
     Indication: Meningitis
     Dates: start: 20230223

REACTIONS (1)
  - Drug reaction with eosinophilia and systemic symptoms [Not Recovered/Not Resolved]

NARRATIVE: CASE EVENT DATE: 20230101
